FAERS Safety Report 6461741-8 (Version None)
Quarter: 2009Q4

REPORT INFORMATION
  Report Type: 
  Country: None (occurrence: None)
  Receive Date: 20091130
  Receipt Date: 20091117
  Transmission Date: 20100525
  Serious: Yes (Other)
  Sender: FDA-Public Use
  Company Number: PHHY2009DE51250

PATIENT
  Age: 72 Year
  Sex: Female

DRUGS (3)
  1. EXFORGE [Suspect]
     Indication: HYPERTENSION
     Dosage: 0.5 DF, QD
     Dates: start: 20091115, end: 20091116
  2. CATAPRESAN [Concomitant]
     Indication: HYPERTENSION
     Dosage: 150 MG, TID
     Route: 048
     Dates: end: 20091114
  3. CATAPRESAN [Concomitant]
     Dosage: 75 MG, TID
     Route: 048
     Dates: start: 20091115, end: 20091116

REACTIONS (1)
  - BLOOD PRESSURE INCREASED [None]
